FAERS Safety Report 6642780-0 (Version None)
Quarter: 2010Q1

REPORT INFORMATION
  Report Type: 
  Country: None (occurrence: None)
  Receive Date: 20100316
  Receipt Date: 20100303
  Transmission Date: 20100710
  Serious: Yes (Hospitalization, Other)
  Sender: FDA-Public Use
  Company Number: 060001M07DNK

PATIENT
  Age: 31 Year
  Sex: Female

DRUGS (5)
  1. SEROPHENE    (CLOMIPHENE CITRATE TABLETS, USP) [Suspect]
     Indication: OVULATION INDUCTION
     Dosage: 50 MG, 1 IN 1 DAYS, ORAL; 100 MG, 1 IN 1 DAYS, ORAL
     Route: 048
     Dates: start: 20070917, end: 20070921
  2. SEROPHENE    (CLOMIPHENE CITRATE TABLETS, USP) [Suspect]
     Indication: OVULATION INDUCTION
     Dosage: 50 MG, 1 IN 1 DAYS, ORAL; 100 MG, 1 IN 1 DAYS, ORAL
     Route: 048
     Dates: start: 20071016, end: 20071021
  3. PREGNYL [Concomitant]
  4. PHENOXYMETHYLPENICILLIN [Concomitant]
  5. YASMIN [Concomitant]

REACTIONS (2)
  - COR PULMONALE ACUTE [None]
  - PULMONARY EMBOLISM [None]
